FAERS Safety Report 16931136 (Version 4)
Quarter: 2019Q4

REPORT INFORMATION
  Report Type: Report from Study
  Country: US (occurrence: US)
  Receive Date: 20191017
  Receipt Date: 20191115
  Transmission Date: 20200122
  Serious: Yes (Other)
  Sender: FDA-Public Use
  Company Number: US-PFIZER INC-2019445217

PATIENT
  Age: 72 Year
  Sex: Male
  Weight: 112.1 kg

DRUGS (29)
  1. COZAAR [Concomitant]
     Active Substance: LOSARTAN POTASSIUM
     Indication: HYPERTENSION
     Dosage: UNK
     Dates: start: 20191003
  2. ANCEF [Concomitant]
     Active Substance: CEFAZOLIN SODIUM
     Indication: PROPHYLAXIS
     Dosage: UNK
     Dates: start: 20191002, end: 20191002
  3. ZOVIRAX [Concomitant]
     Active Substance: ACYCLOVIR
     Indication: ANTIVIRAL PROPHYLAXIS
     Dosage: 400 MG, 2X/DAY
     Route: 048
     Dates: start: 20190618
  4. LEXAPRO [Concomitant]
     Active Substance: ESCITALOPRAM OXALATE
     Indication: PSYCHOTHERAPY
     Dosage: UNK
     Dates: start: 20180104
  5. ACETAMINOPHEN. [Concomitant]
     Active Substance: ACETAMINOPHEN
     Indication: PYREXIA
     Dosage: UNK UNK, AS NEEDED
     Dates: start: 20191005
  6. KLOR-CON [Concomitant]
     Active Substance: POTASSIUM CHLORIDE
     Indication: HYPOKALAEMIA
     Dosage: 40-60 MEQ
     Dates: start: 20191009, end: 20191009
  7. VANCOCIN [Concomitant]
     Active Substance: VANCOMYCIN HYDROCHLORIDE
     Dosage: 1.5G IN D5W 250ML
     Dates: start: 20191008
  8. TOPROL XL [Concomitant]
     Active Substance: METOPROLOL SUCCINATE
     Indication: ATRIAL FIBRILLATION
     Dosage: 50MG, 24HR
     Dates: start: 20150212
  9. GLASDEGIB [Suspect]
     Active Substance: GLASDEGIB
     Indication: ACUTE MYELOID LEUKAEMIA
     Dosage: UNK,ONCE DAILY CONTINUOUS
     Route: 048
     Dates: start: 20190618, end: 20191010
  10. ULTRAM ER [Concomitant]
     Active Substance: TRAMADOL HYDROCHLORIDE
     Indication: PAIN
     Dosage: UNK
     Dates: start: 20190930, end: 20190930
  11. K-DUR [Concomitant]
     Active Substance: POTASSIUM CHLORIDE
     Indication: HYPOKALAEMIA
     Dosage: 40-60 MEQ
     Dates: start: 20191009, end: 20191009
  12. CYTARABINE. [Suspect]
     Active Substance: CYTARABINE
     Dosage: 2.460 G, CYCLIC (OVER 3 HOURS, TWICE DAILY ON DAYS 1, 3, 5)
     Route: 042
     Dates: start: 20190725, end: 20190730
  13. MICAFUNGIN. [Suspect]
     Active Substance: MICAFUNGIN SODIUM
     Indication: CANDIDA INFECTION
     Dosage: 100 MG IN 0.9% NACL 100ML MB+MYCAMINE , Q 24HOURS
     Route: 042
     Dates: start: 20191007
  14. VANCOCIN [Concomitant]
     Active Substance: VANCOMYCIN HYDROCHLORIDE
     Indication: INFECTION
     Dosage: 1.5G IN D5W 250ML
     Dates: start: 20191001, end: 20191006
  15. MYCOSTATIN [Concomitant]
     Active Substance: NYSTATIN
     Indication: PROPHYLAXIS
     Dosage: LIQUID
     Route: 048
     Dates: start: 20191009
  16. ZOSYN [Suspect]
     Active Substance: PIPERACILLIN SODIUM\TAZOBACTAM SODIUM
     Indication: INFECTION
     Dosage: PIGGYBACK 3.375 G IN DEXTROSE ISOSMOTIC, Q6HOURS
     Route: 042
     Dates: start: 20191005, end: 20191010
  17. CYTARABINE. [Suspect]
     Active Substance: CYTARABINE
     Dosage: 2.460 G,CYCLIC (OVER 3 HOURS, TWICE DAILY ON DAYS 1, 3, 5) (CONSOLIDATION WITH SINGLE-AGENT CYTARABI
     Route: 042
     Dates: start: 20190920, end: 20190925
  18. EPINEPHRINE/LIDOCAINE [Concomitant]
     Indication: SURGERY
     Dosage: [EPINEPHRINE 1:100.000]/[LIDOCAINE 1%]
     Dates: start: 20191002, end: 20191002
  19. DAPTOMYCIN. [Suspect]
     Active Substance: DAPTOMYCIN
     Indication: INFECTION
     Dosage: 850 MG IN 0.9% NACL 50ML , Q24HOURS
     Route: 042
     Dates: start: 20191006, end: 20191008
  20. CYTARABINE. [Suspect]
     Active Substance: CYTARABINE
     Indication: ACUTE MYELOID LEUKAEMIA
     Dosage: 251 MG, DAILY BY CONTINUOUS INFUSION (SOLUTION)
     Route: 041
     Dates: start: 20190618, end: 20190625
  21. DAUNORUBICIN [Suspect]
     Active Substance: DAUNORUBICIN
     Indication: ACUTE MYELOID LEUKAEMIA
     Dosage: 151 MG, DAILY BY CONTINUOUS INFUSION (SOLUTION)
     Route: 041
     Dates: start: 20190618, end: 20190620
  22. MELATONIN [Concomitant]
     Active Substance: MELATONIN
     Indication: INSOMNIA
     Dosage: UNK
     Dates: start: 20191001
  23. LEVAQUIN [Concomitant]
     Active Substance: LEVOFLOXACIN
     Indication: INFECTION
     Dosage: UNK
     Dates: start: 20191003
  24. ROXICODONE [Concomitant]
     Active Substance: OXYCODONE HYDROCHLORIDE
     Indication: PAIN
     Dosage: IMMEDIATE-RELEASE (IR)
     Dates: start: 20191001, end: 20191006
  25. BENADRYL [Concomitant]
     Active Substance: DIPHENHYDRAMINE HYDROCHLORIDE
     Indication: PREMEDICATION
     Dosage: UNK
     Dates: start: 20191007, end: 20191007
  26. WELLBUTRIN XL [Concomitant]
     Active Substance: BUPROPION HYDROCHLORIDE
     Indication: PSYCHOTHERAPY
     Dosage: 150 MG 24HR
     Dates: start: 20170428
  27. CYKLOKAPRON [Concomitant]
     Active Substance: TRANEXAMIC ACID
     Indication: THERAPEUTIC PROCEDURE
     Dosage: UNK
     Dates: start: 20191002, end: 20191002
  28. MORPHINE [Concomitant]
     Active Substance: MORPHINE
     Indication: PAIN
     Dosage: UNK
     Dates: start: 20191002, end: 20191003
  29. SUBLIMAZE [Concomitant]
     Active Substance: FENTANYL CITRATE
     Indication: PAIN
     Dosage: 50MCG/ML 25-50MCG INJECTION
     Dates: start: 20191002, end: 20191002

REACTIONS (1)
  - Drug-induced liver injury [Recovered/Resolved]

NARRATIVE: CASE EVENT DATE: 20191011
